FAERS Safety Report 24070881 (Version 1)
Quarter: 2024Q3

REPORT INFORMATION
  Report Type: Spontaneous
  Country: CN (occurrence: CN)
  Receive Date: 20240710
  Receipt Date: 20240710
  Transmission Date: 20241017
  Serious: No
  Sender: ROCHE
  Company Number: CN-ROCHE-3409103

PATIENT
  Age: 38 Year
  Sex: Male

DRUGS (5)
  1. ALECTINIB [Suspect]
     Active Substance: ALECTINIB
     Indication: Histiocytosis
     Dosage: FOR 14 MONTHS
     Route: 048
  2. LORLATINIB [Suspect]
     Active Substance: LORLATINIB
     Indication: Histiocytosis
     Dosage: FOR EIGHT MONTHS
     Route: 065
  3. PACLITAXEL [Concomitant]
     Active Substance: PACLITAXEL
  4. CISPLATIN [Concomitant]
     Active Substance: CISPLATIN
  5. BEVACIZUMAB [Concomitant]
     Active Substance: BEVACIZUMAB

REACTIONS (1)
  - Disease progression [Unknown]
